FAERS Safety Report 22387660 (Version 1)
Quarter: 2023Q2

REPORT INFORMATION
  Report Type: Spontaneous
  Country: US (occurrence: US)
  Receive Date: 20230531
  Receipt Date: 20230531
  Transmission Date: 20230722
  Serious: No
  Sender: FDA-Public Use
  Company Number: US-drreddys-SPO/USA/23/0164790

PATIENT
  Age: 80 Year
  Sex: Female

DRUGS (1)
  1. LEVOCETIRIZINE DIHYDROCHLORIDE [Suspect]
     Active Substance: LEVOCETIRIZINE DIHYDROCHLORIDE
     Indication: Product used for unknown indication
     Route: 048
     Dates: end: 20230502

REACTIONS (2)
  - Hypoaesthesia oral [Unknown]
  - Product use issue [Unknown]
